FAERS Safety Report 6725988-5 (Version None)
Quarter: 2010Q2

REPORT INFORMATION
  Report Type: 
  Country: None (occurrence: None)
  Receive Date: 20100512
  Receipt Date: 20100414
  Transmission Date: 20101027
  Serious: Yes (Hospitalization)
  Sender: FDA-Public Use
  Company Number: AUR-APL-2010-01217

PATIENT
  Age: 63 Year
  Sex: Female

DRUGS (10)
  1. METFORMIN HCL [Suspect]
  2. IRBESARTAN [Concomitant]
  3. NEBIVOLOL [Concomitant]
  4. GLICLAZIDE [Concomitant]
  5. INDAPAMIDE [Concomitant]
  6. ACETYLSALICYLIC ACID SRT [Concomitant]
  7. FENOFIBRATE [Concomitant]
  8. CLOPIDOGREL [Concomitant]
  9. TRIFUSAL [Concomitant]
  10. CALCIUM DOBESILATE [Concomitant]

REACTIONS (6)
  - DEHYDRATION [None]
  - DIARRHOEA [None]
  - HYPERLACTACIDAEMIA [None]
  - LACTIC ACIDOSIS [None]
  - METABOLIC ACIDOSIS [None]
  - RENAL FAILURE ACUTE [None]
